FAERS Safety Report 5525658-5 (Version None)
Quarter: 2007Q4

REPORT INFORMATION
  Report Type: 
  Country: None (occurrence: None)
  Receive Date: 20071120
  Receipt Date: 20071120
  Transmission Date: 20080405
  Serious: Yes (Life-Threatening, Hospitalization)
  Sender: FDA-Public Use
  Company Number: None

PATIENT
  Age: 25 Year
  Sex: Female

DRUGS (1)
  1. ZYPREXA ZYDIS [Suspect]
     Indication: PSYCHOTIC DISORDER
     Dosage: 10MG TWICE DAILY PO
     Route: 048
     Dates: start: 20070812, end: 20070818

REACTIONS (2)
  - AGITATION [None]
  - NEUROLEPTIC MALIGNANT SYNDROME [None]
